FAERS Safety Report 21606843 (Version 1)
Quarter: 2022Q4

REPORT INFORMATION
  Report Type: Spontaneous
  Country: US (occurrence: US)
  Receive Date: 20221117
  Receipt Date: 20221117
  Transmission Date: 20230113
  Serious: No
  Sender: FDA-Public Use
  Company Number: US-ELI_LILLY_AND_COMPANY-US202211008071

PATIENT
  Sex: Male

DRUGS (1)
  1. EMGALITY [Suspect]
     Active Substance: GALCANEZUMAB-GNLM
     Indication: Migraine
     Dosage: 120 MG, UNKNOWN
     Route: 065
     Dates: end: 202210

REACTIONS (5)
  - Chest pain [Recovered/Resolved]
  - Hypoaesthesia [Unknown]
  - Malaise [Unknown]
  - Headache [Unknown]
  - Tinnitus [Unknown]
